FAERS Safety Report 5677134-7 (Version None)
Quarter: 2008Q1

REPORT INFORMATION
  Report Type: 
  Country: None (occurrence: None)
  Receive Date: 20080318
  Receipt Date: 20080303
  Transmission Date: 20080703
  Serious: Yes (Disabling)
  Sender: FDA-Public Use
  Company Number: S08-CAN-00995-01

PATIENT
  Age: 56 Year
  Sex: Female
  Weight: 79 kg

DRUGS (5)
  1. ESCITALOPRAM [Suspect]
     Indication: DEPRESSION
     Dosage: 20 MG QD PO
     Route: 048
     Dates: start: 20050501
  2. ESCITALOPRAM [Suspect]
     Indication: GENERALISED ANXIETY DISORDER
     Dosage: 20 MG QD PO
     Route: 048
     Dates: start: 20050501
  3. WELLBUTRIN [Concomitant]
  4. STRATTERA [Concomitant]
  5. IMOVANE (ZOPICLONE) [Concomitant]

REACTIONS (5)
  - GASTROOESOPHAGEAL REFLUX DISEASE [None]
  - GLOSSODYNIA [None]
  - NO THERAPEUTIC RESPONSE [None]
  - TONGUE BLISTERING [None]
  - TONGUE ULCERATION [None]
